FAERS Safety Report 9469900 (Version 1)
Quarter: 2013Q3

REPORT INFORMATION
  Report Type: Spontaneous
  Country: US (occurrence: None)
  Receive Date: 20130820
  Receipt Date: 20130820
  Transmission Date: 20140515
  Serious: Yes (Hospitalization)
  Sender: FDA-Public Use
  Company Number: None

PATIENT
  Age: 49 Year
  Sex: Male

DRUGS (1)
  1. RIBAPACK [Suspect]
     Indication: CHRONIC HEPATITIS
     Dosage: 1200MG DAILY PO
     Route: 048
     Dates: start: 20130621, end: 20130801

REACTIONS (1)
  - Pneumonia [None]
